FAERS Safety Report 8565280 (Version 3)
Quarter: 2013Q2

REPORT INFORMATION
  Report Type: Spontaneous
  Country: US (occurrence: US)
  Receive Date: 20120516
  Receipt Date: 20130430
  Transmission Date: 20140414
  Serious: Yes (Hospitalization, Other)
  Sender: FDA-Public Use
  Company Number: US-BAYER-2012-046321

PATIENT
  Age: 23 Year
  Sex: Female
  Weight: 105 kg

DRUGS (10)
  1. YAZ [Suspect]
  2. YASMIN [Suspect]
  3. IBUPROFEN [Concomitant]
  4. NORCO [Concomitant]
  5. PHENERGAN [Concomitant]
  6. SOMA [Concomitant]
  7. XANAX [Concomitant]
  8. METRONIDAZOLE [Concomitant]
     Dosage: 500 MG, BID
     Route: 048
     Dates: start: 20120205
  9. LORTAB [Concomitant]
     Indication: PAIN
     Dosage: 10 MG, TID
     Dates: start: 20120308
  10. LORTAB [Concomitant]
     Indication: PAIN
     Dosage: 325 MG, TID
     Route: 048
     Dates: start: 20130308

REACTIONS (10)
  - Cerebrovascular accident [None]
  - Jugular vein thrombosis [None]
  - Transverse sinus thrombosis [None]
  - Injury [None]
  - Pain [None]
  - Anxiety [None]
  - Anhedonia [None]
  - Fear [None]
  - Quality of life decreased [None]
  - Emotional distress [None]
